FAERS Safety Report 5643221-2 (Version None)
Quarter: 2008Q1

REPORT INFORMATION
  Report Type: 
  Country: None (occurrence: None)
  Receive Date: 20080228
  Receipt Date: 20080222
  Transmission Date: 20080703
  Serious: Yes (Hospitalization, Other)
  Sender: FDA-Public Use
  Company Number: US-BRISTOL-MYERS SQUIBB COMPANY-14085856

PATIENT
  Sex: Female

DRUGS (2)
  1. IXEMPRA [Suspect]
     Indication: BREAST CANCER METASTATIC
     Dates: start: 20080213
  2. RADIATION THERAPY [Suspect]
     Dates: start: 20080206

REACTIONS (4)
  - FATIGUE [None]
  - NEUTROPHIL COUNT DECREASED [None]
  - PLATELET COUNT DECREASED [None]
  - RECALL PHENOMENON [None]
